FAERS Safety Report 10308735 (Version 1)
Quarter: 2014Q3

REPORT INFORMATION
  Report Type: Spontaneous
  Country: US (occurrence: None)
  Receive Date: 20140715
  Receipt Date: 20140715
  Transmission Date: 20150326
  Serious: Yes (Hospitalization)
  Sender: FDA-Public Use
  Company Number: None

PATIENT
  Age: 81 Year
  Sex: Female
  Weight: 89.9 kg

DRUGS (1)
  1. RIVAROXABAN 20 MG JANSSEN [Suspect]
     Active Substance: RIVAROXABAN
     Indication: ATRIAL FIBRILLATION
     Dosage: 1  QD  ORAL
     Route: 048
     Dates: start: 20140616, end: 20140626

REACTIONS (1)
  - Hemiparesis [None]

NARRATIVE: CASE EVENT DATE: 20140626
